FAERS Safety Report 8112689-4 (Version None)
Quarter: 2012Q1

REPORT INFORMATION
  Report Type: 
  Country: None (occurrence: None)
  Receive Date: 20120203
  Receipt Date: 20120201
  Transmission Date: 20120608
  Serious: Yes (Hospitalization)
  Sender: FDA-Public Use
  Company Number: KR-ABBOTT-12P-090-0900290-00

PATIENT
  Age: 48 Year
  Sex: Female

DRUGS (1)
  1. ADALIMUMAB [Suspect]
     Indication: RHEUMATOID ARTHRITIS

REACTIONS (2)
  - PULMONARY SARCOIDOSIS [None]
  - GRANULOMA [None]
